FAERS Safety Report 5810958-1 (Version None)
Quarter: 2008Q3

REPORT INFORMATION
  Report Type: 
  Country: None (occurrence: None)
  Receive Date: 20080716
  Receipt Date: 20080709
  Transmission Date: 20090109
  Serious: Yes (Life-Threatening, Hospitalization)
  Sender: FDA-Public Use
  Company Number: PHBS2003JP13402

PATIENT
  Sex: Male
  Weight: 53 kg

DRUGS (5)
  1. GLEEVEC [Suspect]
     Indication: GASTROINTESTINAL STROMAL TUMOUR
     Dosage: 400 MG, QD
     Route: 048
     Dates: start: 20030627, end: 20031029
  2. VOLTAREN [Concomitant]
     Dosage: 75 MG/D
     Route: 048
     Dates: start: 20030627, end: 20031029
  3. FAMOTIDINE [Concomitant]
     Dosage: 40 MG/D
     Route: 048
     Dates: start: 20030627, end: 20031029
  4. PRIMPERAN TAB [Concomitant]
     Dosage: 5 MG/D
     Route: 048
     Dates: start: 20030704, end: 20031029
  5. LASIX [Concomitant]
     Dosage: 20 MG/D
     Route: 048
     Dates: start: 20030725, end: 20031029

REACTIONS (13)
  - DEPRESSED LEVEL OF CONSCIOUSNESS [None]
  - ERYTHEMA [None]
  - GANGRENE [None]
  - GAS GANGRENE [None]
  - HYPOTENSION [None]
  - MYALGIA [None]
  - NECROTISING FASCIITIS [None]
  - PERIRECTAL ABSCESS [None]
  - PYREXIA [None]
  - RECTAL PERFORATION [None]
  - SCROTAL SWELLING [None]
  - SEPSIS [None]
  - SEPTIC SHOCK [None]
